FAERS Safety Report 5782425-5 (Version None)
Quarter: 2008Q2

REPORT INFORMATION
  Report Type: 
  Country: None (occurrence: None)
  Receive Date: 20080623
  Receipt Date: 20080609
  Transmission Date: 20081010
  Serious: Yes (Hospitalization, Other)
  Sender: FDA-Public Use
  Company Number: PHHY2008FR10624

PATIENT
  Sex: Female

DRUGS (7)
  1. VOLTAREN [Interacting]
     Dosage: UNK
     Route: 048
     Dates: end: 20080324
  2. KETOPROFEN [Suspect]
     Dosage: UNK
     Route: 048
     Dates: end: 20080324
  3. LOVENOX [Suspect]
     Dosage: UNK
     Route: 042
  4. MODURETIC 5-50 [Concomitant]
  5. XANAX [Concomitant]
  6. TOPALGIC [Concomitant]
     Dosage: UNK
     Route: 048
     Dates: end: 20080403
  7. NEXIUM [Concomitant]
     Dosage: UNK
     Route: 048
     Dates: end: 20080403

REACTIONS (5)
  - ANAEMIA [None]
  - CHOLESTASIS [None]
  - HAEMATOMA [None]
  - INFLAMMATION [None]
  - SURGERY [None]
